FAERS Safety Report 8899925 (Version 2)
Quarter: 2012Q4

REPORT INFORMATION
  Report Type: 
  Country: JP (occurrence: JP)
  Receive Date: 20121109
  Receipt Date: 20121206
  Transmission Date: 20130627
  Serious: Yes (Other)
  Sender: FDA-Public Use
  Company Number: PHHY2012JP102479

PATIENT
  Sex: Female

DRUGS (6)
  1. VOLTAREN SR [Suspect]
     Indication: PAIN
     Dosage: 75 mg, BID (one dose in the morning and one dose in the evening)
     Route: 048
     Dates: start: 20121009, end: 20121017
  2. VOLTAREN [Suspect]
     Indication: PAIN
     Dosage: 25 mg daily
     Route: 048
     Dates: start: 20121018
  3. LOXONIN [Suspect]
     Indication: PAIN
     Dosage: 1 DF, TID
     Route: 048
  4. PHENAMINE [Suspect]
     Dosage: 60 mg, TID
     Route: 048
  5. MUCOSTA [Concomitant]
     Indication: ABDOMINAL DISCOMFORT
     Dosage: 300 mg, UNK
     Dates: start: 20121020
  6. INTEBAN [Concomitant]
     Dosage: 50 mg, BID
     Route: 054

REACTIONS (7)
  - Haemorrhage [Unknown]
  - Fluid retention [Unknown]
  - Abdominal discomfort [Unknown]
  - Defaecation urgency [Unknown]
  - Decreased appetite [Unknown]
  - Pruritus [Recovered/Resolved]
  - Pain [Unknown]
